FAERS Safety Report 18591178 (Version 1)
Quarter: 2020Q4

REPORT INFORMATION
  Report Type: Spontaneous
  Country: US (occurrence: US)
  Receive Date: 20201208
  Receipt Date: 20201208
  Transmission Date: 20210114
  Serious: No
  Sender: FDA-Public Use
  Company Number: US-ELI_LILLY_AND_COMPANY-US202012000598

PATIENT
  Sex: Female

DRUGS (6)
  1. TYVASO [Suspect]
     Active Substance: TREPROSTINIL
     Indication: PULMONARY ARTERIAL HYPERTENSION
     Dosage: UNK, OTHER
     Route: 055
  2. DILTIAZEM. [Concomitant]
     Active Substance: DILTIAZEM
     Indication: PRODUCT USED FOR UNKNOWN INDICATION
     Dosage: UNK, UNKNOWN
     Route: 065
  3. TADALAFIL. [Suspect]
     Active Substance: TADALAFIL
     Indication: PRODUCT USED FOR UNKNOWN INDICATION
     Dosage: UNK, UNKNOWN
     Route: 065
  4. OXYGEN. [Concomitant]
     Active Substance: OXYGEN
     Indication: PRODUCT USED FOR UNKNOWN INDICATION
     Dosage: UNK, UNKNOWN
     Route: 065
  5. TYVASO [Suspect]
     Active Substance: TREPROSTINIL
     Indication: INTERSTITIAL LUNG DISEASE
     Dosage: UNK, OTHER
     Route: 055
     Dates: start: 20200801, end: 20200804
  6. TYVASO [Suspect]
     Active Substance: TREPROSTINIL
     Dosage: UNK, OTHER
     Route: 055
     Dates: start: 20200804

REACTIONS (10)
  - Dyspnoea [Not Recovered/Not Resolved]
  - Upper-airway cough syndrome [Unknown]
  - Abdominal distension [Not Recovered/Not Resolved]
  - Headache [Recovered/Resolved]
  - Respiratory tract infection [Recovered/Resolved]
  - Fatigue [Not Recovered/Not Resolved]
  - Hypotension [Not Recovered/Not Resolved]
  - Weight increased [Not Recovered/Not Resolved]
  - Cough [Unknown]
  - Panic attack [Not Recovered/Not Resolved]
